FAERS Safety Report 5126971-6 (Version None)
Quarter: 2006Q4

REPORT INFORMATION
  Report Type: 
  Country: None (occurrence: None)
  Receive Date: 20061013
  Receipt Date: 20060714
  Transmission Date: 20070319
  Serious: Yes (Hospitalization)
  Sender: FDA-Public Use
  Company Number: ES-AVENTIS-200617280GDDC

PATIENT
  Age: 63 Year
  Sex: Male
  Weight: 58 kg

DRUGS (4)
  1. DOCETAXEL [Suspect]
     Indication: NEOPLASM MALIGNANT
     Route: 042
     Dates: start: 20060704, end: 20060704
  2. CISPLATIN [Suspect]
     Indication: NEOPLASM MALIGNANT
     Route: 042
     Dates: start: 20060704, end: 20060704
  3. FLUOROURACIL [Suspect]
     Indication: NEOPLASM MALIGNANT
     Route: 042
     Dates: start: 20060704
  4. DURAGESIC                          /00070401/ [Concomitant]
     Indication: PAIN
     Dates: start: 20060312

REACTIONS (1)
  - ISCHAEMIC STROKE [None]
